FAERS Safety Report 9025353 (Version 1)
Quarter: 2012Q4

REPORT INFORMATION
  Report Type: 
  Country: GB (occurrence: GB)
  Receive Date: 20121211
  Receipt Date: 20121211
  Transmission Date: 20130627
  Serious: Yes (Life-Threatening)
  Sender: FDA-Public Use
  Company Number: PHFR2012GB006358

PATIENT
  Age: 52 Year
  Sex: Female
  Weight: 83.7 kg

DRUGS (1)
  1. OCTREOTIDE [Suspect]
     Indication: HYPOGLYCAEMIA
     Dosage: 50 ug, TID
     Route: 058
     Dates: start: 20110928

REACTIONS (1)
  - Lymphoma [Not Recovered/Not Resolved]
